FAERS Safety Report 19318808 (Version 1)
Quarter: 2021Q2

REPORT INFORMATION
  Report Type: Spontaneous
  Country: US (occurrence: US)
  Receive Date: 20210527
  Receipt Date: 20210527
  Transmission Date: 20210717
  Serious: Yes (Other)
  Sender: FDA-Public Use
  Company Number: None

PATIENT
  Sex: Female

DRUGS (2)
  1. FLUTICASONE CREAM 0.05% [Suspect]
     Active Substance: FLUTICASONE PROPIONATE
  2. TRIAMCINOLONE 0.1% [Suspect]
     Active Substance: TRIAMCINOLONE

REACTIONS (1)
  - Drug ineffective [None]
